FAERS Safety Report 24356412 (Version 1)
Quarter: 2024Q3

REPORT INFORMATION
  Report Type: Report from Study
  Country: US (occurrence: None)
  Receive Date: 20240924
  Receipt Date: 20240924
  Transmission Date: 20241016
  Serious: Yes (Other)
  Sender: ADAMAS PHARMA
  Company Number: US-ADAMAS Pharma-ADM202409-003389

PATIENT
  Age: 82 Year
  Sex: Male

DRUGS (2)
  1. GOCOVRI [Suspect]
     Active Substance: AMANTADINE
     Indication: Dyskinesia
     Dosage: 137MG
     Route: 048
     Dates: start: 20240831
  2. GOCOVRI [Suspect]
     Active Substance: AMANTADINE
     Indication: Parkinson^s disease
     Dosage: 274MG
     Route: 048
     Dates: start: 202409

REACTIONS (3)
  - Unresponsive to stimuli [Not Recovered/Not Resolved]
  - Confusional state [Not Recovered/Not Resolved]
  - Fall [Not Recovered/Not Resolved]

NARRATIVE: CASE EVENT DATE: 20240101
